FAERS Safety Report 9246129 (Version 1)
Quarter: 2013Q2

REPORT INFORMATION
  Report Type: Spontaneous
  Country: US (occurrence: US)
  Receive Date: 20130422
  Receipt Date: 20130422
  Transmission Date: 20140414
  Serious: No
  Sender: FDA-Public Use
  Company Number: US-B.I. PHARMACEUTICALS,INC./RIDGEFIELD-2013-BI-11134BP

PATIENT
  Age: 75 Year
  Sex: Female

DRUGS (7)
  1. COMBIVENT [Suspect]
     Route: 055
     Dates: start: 20130413
  2. INSULIN [Concomitant]
     Indication: DIABETES MELLITUS
     Route: 058
  3. METFORMIN [Concomitant]
     Indication: DIABETES MELLITUS
     Route: 048
  4. UNSPECIFIED ANTIHYPERTENSIVE MEDICATION [Concomitant]
     Indication: HYPERTENSION
     Route: 048
  5. VITAMIN [Concomitant]
     Route: 048
  6. STATIN MEDICATION [Concomitant]
     Indication: BLOOD CHOLESTEROL INCREASED
     Route: 048
  7. ASPIRIN [Concomitant]
     Route: 048

REACTIONS (1)
  - Drug prescribing error [Not Recovered/Not Resolved]
